FAERS Safety Report 12909591 (Version 1)
Quarter: 2016Q4

REPORT INFORMATION
  Report Type: Report from Study
  Country: None (occurrence: CA)
  Receive Date: 20161104
  Receipt Date: 20161104
  Transmission Date: 20170207
  Serious: Yes (Hospitalization)
  Sender: FDA-Public Use
  Company Number: CA-ABBVIE-16K-028-1770368-00

PATIENT
  Sex: Female

DRUGS (2)
  1. HUMIRA [Suspect]
     Active Substance: ADALIMUMAB
     Indication: SERONEGATIVE ARTHRITIS
     Route: 058
     Dates: start: 20091218
  2. RESTORALAX [Concomitant]
     Active Substance: POLYETHYLENE GLYCOL 3350
     Indication: CROHN^S DISEASE
     Route: 048

REACTIONS (3)
  - Rheumatoid arthritis [Recovering/Resolving]
  - Abdominal pain upper [Unknown]
  - Abdominal adhesions [Unknown]

NARRATIVE: CASE EVENT DATE: 2016
